FAERS Safety Report 25592452 (Version 7)
Quarter: 2025Q4

REPORT INFORMATION
  Report Type: Spontaneous
  Country: US (occurrence: US)
  Receive Date: 20250722
  Receipt Date: 20251002
  Transmission Date: 20260117
  Serious: No
  Sender: PFIZER
  Company Number: US-PFIZER INC-202500142818

PATIENT
  Age: 4 Year
  Sex: Male
  Weight: 14 kg

DRUGS (2)
  1. GENOTROPIN [Suspect]
     Active Substance: SOMATROPIN
     Indication: Small for dates baby
     Dosage: 0.3 MG, DAILY
  2. GENOTROPIN [Suspect]
     Active Substance: SOMATROPIN
     Dosage: UNK
     Route: 058
     Dates: start: 202303

REACTIONS (1)
  - Device defective [Unknown]
